FAERS Safety Report 16863544 (Version 1)
Quarter: 2019Q3

REPORT INFORMATION
  Report Type: Spontaneous
  Country: US (occurrence: US)
  Receive Date: 20190927
  Receipt Date: 20190927
  Transmission Date: 20191005
  Serious: No
  Sender: FDA-Public Use
  Company Number: US-JNJFOC-20190922787

PATIENT
  Age: 55 Year
  Sex: Male
  Weight: 74.91 kg

DRUGS (8)
  1. FLOVENT [Concomitant]
     Active Substance: FLUTICASONE PROPIONATE
  2. TUMS [Concomitant]
     Active Substance: CALCIUM CARBONATE
  3. ASPRIN [Concomitant]
     Active Substance: ASPIRIN
  4. NASACORT [Concomitant]
     Active Substance: TRIAMCINOLONE ACETONIDE
  5. SINGULAIR [Concomitant]
     Active Substance: MONTELUKAST SODIUM
  6. SPRAVATO [Suspect]
     Active Substance: ESKETAMINE
     Indication: DEPRESSION
     Dates: start: 20190916
  7. ASTELIN [Concomitant]
     Active Substance: AZELASTINE HYDROCHLORIDE
  8. ZANTAC [Concomitant]
     Active Substance: RANITIDINE HYDROCHLORIDE

REACTIONS (17)
  - Dyspnoea [Not Recovered/Not Resolved]
  - Somnolence [Not Recovered/Not Resolved]
  - Eating disorder [Not Recovered/Not Resolved]
  - Hypokinesia [Not Recovered/Not Resolved]
  - Influenza like illness [Not Recovered/Not Resolved]
  - Dysarthria [Not Recovered/Not Resolved]
  - Tremor [Not Recovered/Not Resolved]
  - Hypoaesthesia [Not Recovered/Not Resolved]
  - Insomnia [Not Recovered/Not Resolved]
  - Panic reaction [Not Recovered/Not Resolved]
  - Communication disorder [Not Recovered/Not Resolved]
  - Hallucination, visual [Not Recovered/Not Resolved]
  - Nausea [Not Recovered/Not Resolved]
  - Asthenia [Not Recovered/Not Resolved]
  - Speech disorder [Not Recovered/Not Resolved]
  - Dizziness [Not Recovered/Not Resolved]
  - Vomiting [Not Recovered/Not Resolved]

NARRATIVE: CASE EVENT DATE: 20190916
